FAERS Safety Report 10626797 (Version 3)
Quarter: 2014Q4

REPORT INFORMATION
  Report Type: Report from Study
  Country: US (occurrence: US)
  Receive Date: 20141204
  Receipt Date: 20141215
  Transmission Date: 20150529
  Serious: Yes (Death)
  Sender: FDA-Public Use
  Company Number: US-EXELIXIS-CABO-14004932

PATIENT
  Sex: Male

DRUGS (2)
  1. CABOZANTINIB [Suspect]
     Active Substance: CABOZANTINIB
     Indication: RENAL CANCER
     Dosage: 40 MG, QD
     Route: 048
     Dates: start: 20141012, end: 20141126
  2. SCOPOLAMINE [Concomitant]
     Active Substance: SCOPOLAMINE

REACTIONS (6)
  - Nausea [Unknown]
  - Drug ineffective [None]
  - Off label use [Unknown]
  - Malignant neoplasm progression [None]
  - Death [Fatal]
  - Renal cell carcinoma [None]
